FAERS Safety Report 10012103 (Version 7)
Quarter: 2017Q2

REPORT INFORMATION
  Report Type: Spontaneous
  Country: IE (occurrence: IE)
  Receive Date: 20140314
  Receipt Date: 20170523
  Transmission Date: 20170829
  Serious: Yes (Disabling, Congenital Anomaly, Other)
  Sender: FDA-Public Use
  Company Number: IE-ABBVIE-13X-229-1095501-00

PATIENT
  Sex: Male

DRUGS (2)
  1. EPILIM [Suspect]
     Active Substance: VALPROATE SODIUM
     Indication: MATERNAL EXPOSURE TIMING UNSPECIFIED
     Route: 064
  2. EPILIM [Suspect]
     Active Substance: VALPROATE SODIUM
     Indication: MATERNAL EXPOSURE TIMING UNSPECIFIED
     Route: 064

REACTIONS (23)
  - Cerebral palsy [Not Recovered/Not Resolved]
  - Hypertrichosis [Not Recovered/Not Resolved]
  - Mental impairment [Not Recovered/Not Resolved]
  - Intellectual disability [Not Recovered/Not Resolved]
  - Learning disorder [Not Recovered/Not Resolved]
  - Cardiac murmur [Not Recovered/Not Resolved]
  - Decreased vibratory sense [Not Recovered/Not Resolved]
  - Stridor [Not Recovered/Not Resolved]
  - Dysmorphism [Not Recovered/Not Resolved]
  - Dyspraxia [Not Recovered/Not Resolved]
  - Speech disorder developmental [Not Recovered/Not Resolved]
  - Autism spectrum disorder [Not Recovered/Not Resolved]
  - Developmental delay [Unknown]
  - Foetal anticonvulsant syndrome [Not Recovered/Not Resolved]
  - Body height abnormal [Not Recovered/Not Resolved]
  - Central nervous system lesion [Not Recovered/Not Resolved]
  - Lip disorder [Unknown]
  - Impulsive behaviour [Not Recovered/Not Resolved]
  - Eye disorder [Not Recovered/Not Resolved]
  - Ankyloglossia congenital [Not Recovered/Not Resolved]
  - Foetal exposure during pregnancy [Unknown]
  - Cerebrovascular accident [Not Recovered/Not Resolved]
  - Low set ears [Unknown]

NARRATIVE: CASE EVENT DATE: 19870511
